FAERS Safety Report 18988424 (Version 1)
Quarter: 2021Q1

REPORT INFORMATION
  Report Type: Other
  Country: US (occurrence: US)
  Receive Date: 20210309
  Receipt Date: 20210309
  Transmission Date: 20210420
  Serious: Yes (Life-Threatening, Hospitalization, Disabling)
  Sender: FDA-Public Use
  Company Number: US-NOSTRUM LABORATORIES, INC.-2107780

PATIENT
  Age: 4 Year
  Sex: Male

DRUGS (1)
  1. OXYCODONE AND ACETAMINOPHEN [Suspect]
     Active Substance: ACETAMINOPHEN\OXYCODONE HYDROCHLORIDE
     Indication: ACCIDENTAL OVERDOSE
     Route: 048

REACTIONS (11)
  - Hypertension [Recovered/Resolved]
  - Liver injury [Recovered/Resolved]
  - Blindness [Not Recovered/Not Resolved]
  - Coma [Recovered/Resolved with Sequelae]
  - Toxic leukoencephalopathy [Recovered/Resolved with Sequelae]
  - Disseminated intravascular coagulation [Recovered/Resolved]
  - Renal injury [Recovered/Resolved]
  - Brain compression [Recovered/Resolved with Sequelae]
  - Selective eating disorder [Unknown]
  - Intracranial pressure increased [Recovered/Resolved with Sequelae]
  - Disability [Recovered/Resolved with Sequelae]
